FAERS Safety Report 9083905 (Version 1)
Quarter: 2013Q1

REPORT INFORMATION
  Report Type: Report from Study
  Country: US (occurrence: US)
  Receive Date: 20130130
  Receipt Date: 20130130
  Transmission Date: 20140127
  Serious: No
  Sender: FDA-Public Use
  Company Number: US-ABBOTT-12P-163-0961901-00

PATIENT
  Age: 51 Year
  Sex: Female

DRUGS (6)
  1. HUMIRA 40 MG/0.8 ML PEN [Suspect]
     Indication: RHEUMATOID ARTHRITIS
     Dates: start: 20120425, end: 20120523
  2. PREMPRO [Concomitant]
     Indication: OESTROGEN REPLACEMENT THERAPY
     Dosage: 200MG DAILY
  3. ESTRADIOL [Concomitant]
     Indication: OESTROGEN REPLACEMENT THERAPY
     Dosage: 0.25MG PATCH CHANGES EVERY 4 DAYS
  4. TYLENOL [Concomitant]
     Indication: PAIN
     Dosage: DAILY
  5. DOCUSATE [Concomitant]
     Indication: CONSTIPATION
     Dosage: DAILY
  6. OMEPRAZOLE [Concomitant]
     Indication: GASTROOESOPHAGEAL REFLUX DISEASE
     Dosage: 10MG DAILY

REACTIONS (5)
  - Weight increased [Recovered/Resolved]
  - Nasopharyngitis [Recovered/Resolved]
  - Oropharyngeal pain [Recovered/Resolved]
  - Rhinorrhoea [Recovered/Resolved]
  - Nasal congestion [Recovered/Resolved]
